FAERS Safety Report 7042689-7 (Version None)
Quarter: 2010Q4

REPORT INFORMATION
  Report Type: 
  Country: None (occurrence: None)
  Receive Date: 20101013
  Receipt Date: 20090915
  Transmission Date: 20110411
  Serious: No
  Sender: FDA-Public Use
  Company Number: US-ASTRAZENECA-2009SE13608

PATIENT
  Sex: Female

DRUGS (3)
  1. SYMBICORT [Suspect]
     Indication: ASTHMA
     Dosage: 320 MCG
     Route: 055
     Dates: start: 20080101, end: 20090101
  2. SYMBICORT [Suspect]
     Dosage: 160/4.5 MCG 120 INHALATION 2 PUFFS BID
     Route: 055
     Dates: start: 20090101
  3. ANTIBIOTICS [Concomitant]

REACTIONS (3)
  - ASTHMA [None]
  - DRUG INEFFECTIVE [None]
  - DYSPNOEA [None]
